FAERS Safety Report 20939028 (Version 1)
Quarter: 2022Q2

REPORT INFORMATION
  Report Type: Report from Study
  Country: MX (occurrence: MX)
  Receive Date: 20220609
  Receipt Date: 20220609
  Transmission Date: 20220720
  Serious: Yes (Other)
  Sender: FDA-Public Use
  Company Number: MX-GLAXOSMITHKLINE-MX2022AMR088930

PATIENT

DRUGS (1)
  1. NIRAPARIB [Suspect]
     Active Substance: NIRAPARIB
     Indication: Product used for unknown indication
     Dosage: 300 MG, QD
     Dates: start: 20220526, end: 20220602

REACTIONS (1)
  - Vitreous detachment [Unknown]

NARRATIVE: CASE EVENT DATE: 20220602
